FAERS Safety Report 6680424-2 (Version None)
Quarter: 2010Q2

REPORT INFORMATION
  Report Type: 
  Country: None (occurrence: None)
  Receive Date: 20100414
  Receipt Date: 20100408
  Transmission Date: 20101027
  Serious: Yes (Hospitalization, Disabling)
  Sender: FDA-Public Use
  Company Number: US-BIOGENIDEC-2009BI038867

PATIENT
  Age: 62 Year
  Sex: Female

DRUGS (10)
  1. TYSABRI [Suspect]
     Indication: MULTIPLE SCLEROSIS
     Route: 042
     Dates: start: 20070905
  2. VITAMIN C [Concomitant]
  3. IRON SULFATETHIAMIN COMPOUND TAB [Concomitant]
  4. COLACE [Concomitant]
  5. CELEBREX [Concomitant]
  6. VITAMIN D3 [Concomitant]
  7. CALCIUM CARBONATE [Concomitant]
  8. REQUIP [Concomitant]
  9. ESTRACE [Concomitant]
  10. CYMBALTA [Concomitant]

REACTIONS (2)
  - FALL [None]
  - HIP FRACTURE [None]
